FAERS Safety Report 4886029-8 (Version None)
Quarter: 2006Q1

REPORT INFORMATION
  Report Type: 
  Country: None (occurrence: None)
  Receive Date: 20060117
  Receipt Date: 20060106
  Transmission Date: 20060701
  Serious: Yes (Other)
  Sender: FDA-Public Use
  Company Number: MEDI-0004038

PATIENT
  Age: 5 Month
  Sex: Male

DRUGS (1)
  1. SYNAGIS [Suspect]
     Indication: ANTIVIRAL PROPHYLAXIS
     Dosage: 1 IN 30 D, INTRAMUSCULAR
     Route: 030

REACTIONS (5)
  - ASPIRATION [None]
  - CARDIO-RESPIRATORY ARREST [None]
  - HYPOXIC ENCEPHALOPATHY [None]
  - ISCHAEMIA [None]
  - VOMITING [None]
